FAERS Safety Report 15896991 (Version 3)
Quarter: 2019Q1

REPORT INFORMATION
  Report Type: Report from Study
  Country: US (occurrence: US)
  Receive Date: 20190131
  Receipt Date: 20190220
  Transmission Date: 20190417
  Serious: Yes (Other)
  Sender: FDA-Public Use
  Company Number: US-GILEAD-2019-0387702

PATIENT
  Age: 51 Year
  Sex: Female

DRUGS (1)
  1. TENOFOVIR DISOPROXIL FUMARATE. [Suspect]
     Active Substance: TENOFOVIR DISOPROXIL FUMARATE
     Indication: CHRONIC HEPATITIS B
     Dosage: 300 MG, QD
     Route: 048
     Dates: start: 2015, end: 2017

REACTIONS (9)
  - Foot fracture [Unknown]
  - Paraesthesia [Recovered/Resolved]
  - Pain in extremity [Recovered/Resolved]
  - Hip fracture [Unknown]
  - Tachycardia [Unknown]
  - Dyspnoea [Unknown]
  - Hypoaesthesia [Recovered/Resolved]
  - Osteopenia [Unknown]
  - Anxiety [Recovered/Resolved]
